FAERS Safety Report 22877678 (Version 20)
Quarter: 2025Q2

REPORT INFORMATION
  Report Type: Report from Study
  Country: CA (occurrence: CA)
  Receive Date: 20230829
  Receipt Date: 20250604
  Transmission Date: 20250717
  Serious: Yes (Hospitalization, Other)
  Sender: TAKEDA
  Company Number: CA-TAKEDA-2023TUS080803

PATIENT
  Age: 3 Year
  Sex: Female
  Weight: 17 kg

DRUGS (26)
  1. TEDUGLUTIDE [Suspect]
     Active Substance: TEDUGLUTIDE
     Indication: Short-bowel syndrome
     Dosage: 0.75 MILLIGRAM, QD
     Dates: start: 20230816
  2. TEDUGLUTIDE [Suspect]
     Active Substance: TEDUGLUTIDE
     Dosage: 0.75 MILLIGRAM, QD
  3. TEDUGLUTIDE [Suspect]
     Active Substance: TEDUGLUTIDE
     Dosage: 0.75 MILLIGRAM, QD
  4. TEDUGLUTIDE [Suspect]
     Active Substance: TEDUGLUTIDE
     Dosage: UNK UNK, QD
  5. TEDUGLUTIDE [Suspect]
     Active Substance: TEDUGLUTIDE
     Dosage: 0.75 MILLIGRAM, QD
  6. TEDUGLUTIDE [Suspect]
     Active Substance: TEDUGLUTIDE
     Dosage: UNK UNK, QD
  7. TEDUGLUTIDE [Suspect]
     Active Substance: TEDUGLUTIDE
     Dosage: 0.75 MILLIGRAM, QD
  8. TEDUGLUTIDE [Suspect]
     Active Substance: TEDUGLUTIDE
     Dosage: 0.75 MILLIGRAM, QD
  9. TEDUGLUTIDE [Suspect]
     Active Substance: TEDUGLUTIDE
     Dosage: 0.75 MILLIGRAM, QD
  10. TEDUGLUTIDE [Suspect]
     Active Substance: TEDUGLUTIDE
     Dosage: 0.8 MILLIGRAM, QD
  11. TEDUGLUTIDE [Suspect]
     Active Substance: TEDUGLUTIDE
     Dosage: 0.8 MILLIGRAM, QD
     Dates: end: 20241001
  12. TEDUGLUTIDE [Suspect]
     Active Substance: TEDUGLUTIDE
     Dosage: 0.8 MILLIGRAM, QD
     Dates: start: 20250424
  13. TEDUGLUTIDE [Suspect]
     Active Substance: TEDUGLUTIDE
     Dosage: 8 MILLIGRAM, QD
  14. TPN [Concomitant]
     Active Substance: AMINO ACIDS\DEXTROSE\ELECTROLYTES NOS\SOYBEAN OIL
  15. TPN [Concomitant]
     Active Substance: AMINO ACIDS\DEXTROSE\ELECTROLYTES NOS\SOYBEAN OIL
     Dosage: 1515 MILLILITER, QD
     Dates: start: 20231004
  16. TPN [Concomitant]
     Active Substance: AMINO ACIDS\DEXTROSE\ELECTROLYTES NOS\SOYBEAN OIL
     Dosage: 1365 MILLILITER, QD
     Dates: start: 20231107
  17. TPN [Concomitant]
     Active Substance: AMINO ACIDS\DEXTROSE\ELECTROLYTES NOS\SOYBEAN OIL
     Dosage: 1265 MILLILITER, QD
     Dates: start: 20240108
  18. TPN [Concomitant]
     Active Substance: AMINO ACIDS\DEXTROSE\ELECTROLYTES NOS\SOYBEAN OIL
     Dosage: 1465 MILLILITER, QD
     Dates: start: 20240918
  19. TPN [Concomitant]
     Active Substance: AMINO ACIDS\DEXTROSE\ELECTROLYTES NOS\SOYBEAN OIL
     Dosage: 1665 MILLILITER, QD
     Dates: start: 20241003
  20. TPN [Concomitant]
     Active Substance: AMINO ACIDS\DEXTROSE\ELECTROLYTES NOS\SOYBEAN OIL
     Dosage: 1900 MILLILITER, QD
     Dates: start: 20241112
  21. TPN [Concomitant]
     Active Substance: AMINO ACIDS\DEXTROSE\ELECTROLYTES NOS\SOYBEAN OIL
     Dosage: 1250 MILLILITER, QD
     Dates: start: 20241218
  22. PANTOPRAZOLE SODIUM [Concomitant]
     Active Substance: PANTOPRAZOLE SODIUM
     Dosage: 18 MILLIGRAM, QD
  23. LOPERAMIDE [Concomitant]
     Active Substance: LOPERAMIDE
     Dosage: 4 MILLIGRAM, BID
  24. LOPERAMIDE [Concomitant]
     Active Substance: LOPERAMIDE
     Dosage: 5 MILLIGRAM, TID
     Dates: start: 20211001
  25. ENOXAPARIN [Concomitant]
     Active Substance: ENOXAPARIN
     Dosage: 14 MILLIGRAM, QD
  26. Enox [Concomitant]

REACTIONS (30)
  - Vascular device infection [Recovered/Resolved]
  - Gastrointestinal stoma output abnormal [Recovered/Resolved]
  - Urine output decreased [Unknown]
  - Increased appetite [Recovered/Resolved]
  - Emotional disorder [Unknown]
  - Urine odour abnormal [Recovering/Resolving]
  - Abnormal faeces [Recovered/Resolved]
  - Bacterial infection [Recovering/Resolving]
  - Rhinorrhoea [Recovering/Resolving]
  - Irritability [Recovering/Resolving]
  - Weight decreased [Recovered/Resolved]
  - Diarrhoea [Recovered/Resolved]
  - Weight gain poor [Not Recovered/Not Resolved]
  - Weight increased [Not Recovered/Not Resolved]
  - Fluid retention [Unknown]
  - Decreased appetite [Recovering/Resolving]
  - Abdominal pain [Unknown]
  - Device failure [Recovered/Resolved]
  - Hyperphagia [Unknown]
  - Abdominal discomfort [Unknown]
  - Enuresis [Recovered/Resolved]
  - Periorbital swelling [Unknown]
  - Stoma site erythema [Unknown]
  - Pyrexia [Not Recovered/Not Resolved]
  - Gastrointestinal stoma output decreased [Unknown]
  - Stoma complication [Unknown]
  - Energy increased [Recovered/Resolved]
  - Nocturia [Recovered/Resolved]
  - Urine output increased [Recovered/Resolved]
  - Product dose omission issue [Recovered/Resolved]

NARRATIVE: CASE EVENT DATE: 20230817
